FAERS Safety Report 15741871 (Version 1)
Quarter: 2018Q4

REPORT INFORMATION
  Report Type: Spontaneous
  Country: US (occurrence: US)
  Receive Date: 20181219
  Receipt Date: 20181219
  Transmission Date: 20190205
  Serious: Yes (Other)
  Sender: FDA-Public Use
  Company Number: US-BAYER-2018-233177

PATIENT

DRUGS (3)
  1. STIVARGA [Suspect]
     Active Substance: REGORAFENIB
     Indication: HEPATOCELLULAR CARCINOMA
     Dosage: UNK
  2. NEXAVAR [Suspect]
     Active Substance: SORAFENIB
     Indication: HEPATOCELLULAR CARCINOMA
     Dosage: UNK
  3. NIVOLUMAB [Concomitant]
     Active Substance: NIVOLUMAB

REACTIONS (4)
  - Adverse reaction [None]
  - Alanine aminotransferase abnormal [None]
  - Hepatocellular carcinoma [None]
  - Aspartate aminotransferase abnormal [None]
